FAERS Safety Report 24721779 (Version 1)
Quarter: 2024Q4

REPORT INFORMATION
  Report Type: Spontaneous
  Country: DZ (occurrence: DZ)
  Receive Date: 20241211
  Receipt Date: 20241211
  Transmission Date: 20250115
  Serious: Yes (Life-Threatening, Hospitalization)
  Sender: BAYER HEALTHCARE PHARMACEUTICALS INC.
  Company Number: DZ-BAYER-2024A175220

PATIENT
  Age: 76 Year
  Sex: Male

DRUGS (1)
  1. ULTRAVIST [Suspect]
     Active Substance: IOPROMIDE

REACTIONS (3)
  - Oxygen saturation decreased [None]
  - Cyanosis [None]
  - Muscle spasms [None]

NARRATIVE: CASE EVENT DATE: 20241204
